FAERS Safety Report 6668030-7 (Version None)
Quarter: 2010Q2

REPORT INFORMATION
  Report Type: 
  Country: None (occurrence: None)
  Receive Date: 20100405
  Receipt Date: 20100326
  Transmission Date: 20101027
  Serious: Yes (Hospitalization, Other)
  Sender: FDA-Public Use
  Company Number: US-ABBOTT-10P-163-0635044-00

PATIENT
  Sex: Female

DRUGS (2)
  1. HUMIRA [Suspect]
     Indication: ANKYLOSING SPONDYLITIS
     Dates: start: 20090101, end: 20091001
  2. HUMIRA [Suspect]
     Dates: start: 20091201

REACTIONS (4)
  - IMPAIRED HEALING [None]
  - SCRATCH [None]
  - SKIN LACERATION [None]
  - STAPHYLOCOCCAL INFECTION [None]
